FAERS Safety Report 6421673-8 (Version None)
Quarter: 2009Q4

REPORT INFORMATION
  Report Type: 
  Country: None (occurrence: None)
  Receive Date: 20091029
  Receipt Date: 20091029
  Transmission Date: 20100525
  Serious: No
  Sender: FDA-Public Use
  Company Number: None

PATIENT
  Sex: Female
  Weight: 109.7705 kg

DRUGS (1)
  1. ALPRAZOLAM [Suspect]
     Indication: ANXIETY
     Dosage: 1 PILL AS NEEDED PO
     Route: 048
     Dates: start: 20091019, end: 20091019

REACTIONS (7)
  - ANGER [None]
  - DRUG INEFFECTIVE [None]
  - FATIGUE [None]
  - FEAR [None]
  - HALLUCINATION [None]
  - HOSTILITY [None]
  - MIDDLE INSOMNIA [None]
